FAERS Safety Report 21918783 (Version 5)
Quarter: 2023Q1

REPORT INFORMATION
  Report Type: Spontaneous
  Country: US (occurrence: US)
  Receive Date: 20230127
  Receipt Date: 20230329
  Transmission Date: 20230418
  Serious: No
  Sender: FDA-Public Use
  Company Number: US-SA-SAC20230124001570

PATIENT
  Age: 30 Year
  Sex: Female
  Weight: 76.644 kg

DRUGS (3)
  1. DUPIXENT [Suspect]
     Active Substance: DUPILUMAB
     Indication: Dermatitis atopic
     Dosage: 600 MG, 1X
     Route: 058
     Dates: start: 20230117, end: 20230117
  2. DUPIXENT [Suspect]
     Active Substance: DUPILUMAB
     Dosage: 300 MG, QOW
     Route: 058
     Dates: start: 202301, end: 20230301
  3. MAGNESIUM [Concomitant]
     Active Substance: MAGNESIUM
     Indication: Supplementation therapy
     Dosage: UNK

REACTIONS (6)
  - Diarrhoea [Unknown]
  - Injection site urticaria [Not Recovered/Not Resolved]
  - Asthenopia [Unknown]
  - Urticaria [Unknown]
  - Injection site pruritus [Recovered/Resolved]
  - Dry eye [Unknown]

NARRATIVE: CASE EVENT DATE: 20230101
